FAERS Safety Report 16998782 (Version 1)
Quarter: 2019Q4

REPORT INFORMATION
  Report Type: Spontaneous
  Country: US (occurrence: US)
  Receive Date: 20191106
  Receipt Date: 20191106
  Transmission Date: 20200122
  Serious: No
  Sender: FDA-Public Use
  Company Number: US-MYLANLABS-2019M1100307

PATIENT
  Sex: Male
  Weight: 75 kg

DRUGS (2)
  1. CLOBETASOL PROPIONATE FOAM [Suspect]
     Active Substance: CLOBETASOL PROPIONATE
     Indication: DERMATITIS
     Dosage: UNK UNK, BID (1 CAPFUL TWICE DAILY UP TO FOUR WEEKS)
     Route: 003
     Dates: start: 20190722
  2. PROPECIA [Concomitant]
     Active Substance: FINASTERIDE
     Dosage: UNK
     Dates: start: 201910

REACTIONS (2)
  - Drug ineffective [Not Recovered/Not Resolved]
  - Off label use [Not Recovered/Not Resolved]

NARRATIVE: CASE EVENT DATE: 2019
